FAERS Safety Report 23986011 (Version 1)
Quarter: 2024Q2

REPORT INFORMATION
  Report Type: Report from Study
  Country: CN (occurrence: CN)
  Receive Date: 20240618
  Receipt Date: 20240618
  Transmission Date: 20240716
  Serious: Yes (Other)
  Sender: FDA-Public Use
  Company Number: CN-002147023-NVSC2024CN126221

PATIENT

DRUGS (1)
  1. ENTRESTO [Suspect]
     Active Substance: SACUBITRIL\VALSARTAN
     Indication: Hypertension
     Dosage: 400 MG, BID
     Route: 048

REACTIONS (4)
  - Nasopharyngitis [Unknown]
  - Blood creatinine increased [Unknown]
  - Acute kidney injury [Unknown]
  - Off label use [Unknown]
